FAERS Safety Report 25555260 (Version 1)
Quarter: 2025Q3

REPORT INFORMATION
  Report Type: Spontaneous
  Country: US (occurrence: None)
  Receive Date: 20250715
  Receipt Date: 20250715
  Transmission Date: 20251021
  Serious: Yes (Hospitalization)
  Sender: FDA-CTU
  Company Number: None

PATIENT
  Age: 82 Year
  Sex: Female
  Weight: 69.1 kg

DRUGS (2)
  1. DARATUMUMAB\HYALURONIDASE-FIHJ [Suspect]
     Active Substance: DARATUMUMAB\HYALURONIDASE-FIHJ
     Dates: start: 20220301, end: 20250630
  2. LENALIDOMIDE [Suspect]
     Active Substance: LENALIDOMIDE
     Dates: end: 20250712

REACTIONS (8)
  - Abdominal pain [None]
  - Constipation [None]
  - Diarrhoea [None]
  - Gastrointestinal wall thickening [None]
  - Colitis [None]
  - Colitis ischaemic [None]
  - Fluid retention [None]
  - Clostridium test positive [None]

NARRATIVE: CASE EVENT DATE: 20220712
